FAERS Safety Report 6672095-6 (Version None)
Quarter: 2010Q2

REPORT INFORMATION
  Report Type: 
  Country: None (occurrence: None)
  Receive Date: 20100407
  Receipt Date: 20100407
  Transmission Date: 20101027
  Serious: Yes (Hospitalization)
  Sender: FDA-Public Use
  Company Number: None

PATIENT
  Age: 27 Year
  Sex: Female
  Weight: 63.9572 kg

DRUGS (1)
  1. AMBIEN [Suspect]
     Indication: INSOMNIA
     Dosage: 1 PILL NIGHTLY PO
     Route: 048
     Dates: start: 20100101, end: 20100402

REACTIONS (6)
  - AMNESIA [None]
  - ELECTROCARDIOGRAM ABNORMAL [None]
  - FALL [None]
  - MULTIPLE DRUG OVERDOSE [None]
  - SOMNAMBULISM [None]
  - TACHYCARDIA [None]
